FAERS Safety Report 20487840 (Version 2)
Quarter: 2022Q2

REPORT INFORMATION
  Report Type: Spontaneous
  Country: JP (occurrence: JP)
  Receive Date: 20220218
  Receipt Date: 20220414
  Transmission Date: 20220721
  Serious: Yes (Other)
  Sender: FDA-Public Use
  Company Number: JP-NOVOPROD-890477

PATIENT
  Age: 79 Year
  Sex: Male

DRUGS (4)
  1. NOVORAPID [Suspect]
     Active Substance: INSULIN ASPART
     Indication: Diabetes mellitus
     Dosage: 40 IU, QD (13-9-9-9 IU)
     Route: 058
  2. NOVORAPID [Suspect]
     Active Substance: INSULIN ASPART
     Dosage: 41 IU, QD
     Route: 058
  3. NOVOLIN N [Concomitant]
     Active Substance: INSULIN HUMAN
     Indication: Diabetes mellitus
     Dosage: 10 IU, QD (6-0-0-4IU)
     Route: 058
  4. NOVOLIN N [Concomitant]
     Active Substance: INSULIN HUMAN
     Dosage: 11 IU, QD
     Route: 058

REACTIONS (4)
  - Hyperglycaemia [Unknown]
  - Device delivery system issue [Unknown]
  - Device issue [Unknown]
  - Hypoglycaemia [Unknown]

NARRATIVE: CASE EVENT DATE: 20211201
